FAERS Safety Report 5178849-X (Version None)
Quarter: 2006Q4

REPORT INFORMATION
  Report Type: 
  Country: None (occurrence: None)
  Receive Date: 20061208
  Receipt Date: 20061129
  Transmission Date: 20070319
  Serious: Yes (Death)
  Sender: FDA-Public Use
  Company Number: 233299

PATIENT
  Age: 55 Year
  Sex: Male
  Weight: 73 kg

DRUGS (8)
  1. BEVACIZUMAB [Suspect]
     Indication: NON-SMALL CELL LUNG CANCER
     Dosage: 15MG/KG, Q3W, INTRAVENOUS
     Route: 042
     Dates: start: 20060725, end: 20061114
  2. CARBOPLATIN [Suspect]
     Indication: NON-SMALL CELL LUNG CANCER
     Dosage: UNK, 1/WEEK,
  3. PACLITAXEL [Suspect]
     Indication: NON-SMALL CELL LUNG CANCER
     Dosage: UNK, 1/WEEK,
  4. NICORETTE GUM                    (NICOTINE POLACRILEX) [Concomitant]
  5. ADVAIR DISKUS 100/50 [Concomitant]
  6. PRILOSEC [Concomitant]
  7. ROXICET [Concomitant]
  8. WELLBUTRIN [Concomitant]

REACTIONS (1)
  - MOUTH HAEMORRHAGE [None]
